FAERS Safety Report 4885392-1 (Version None)
Quarter: 2005Q4

REPORT INFORMATION
  Report Type: 
  Country: None (occurrence: None)
  Receive Date: 20051220
  Receipt Date: 20050318
  Transmission Date: 20060501
  Serious: Yes (Other)
  Sender: FDA-Public Use
  Company Number: HQWYE409828MAR05

PATIENT
  Age: 41 Year
  Sex: Male
  Weight: 106.69 kg

DRUGS (1)
  1. EFFEXOR XR [Suspect]
     Indication: DEPRESSION
     Dosage: 37.5 MG 2X PER 1 DAY, ORAL
     Route: 048
     Dates: start: 19990101

REACTIONS (5)
  - FEELING HOT [None]
  - HEADACHE [None]
  - MIGRAINE [None]
  - PHOTOPHOBIA [None]
  - VISUAL DISTURBANCE [None]
